FAERS Safety Report 16119694 (Version 1)
Quarter: 2019Q1

REPORT INFORMATION
  Report Type: Spontaneous
  Country: CA (occurrence: CA)
  Receive Date: 20190326
  Receipt Date: 20190326
  Transmission Date: 20190418
  Serious: Yes (Hospitalization)
  Sender: FDA-Public Use
  Company Number: CA-PFIZER INC-2019124299

PATIENT
  Age: 3 Year
  Sex: Male

DRUGS (1)
  1. RAPAMUNE [Suspect]
     Active Substance: SIROLIMUS
     Dosage: 0.5 ML, 2X/DAY
     Route: 048
     Dates: start: 20190319

REACTIONS (3)
  - Infection [Unknown]
  - Product use issue [Unknown]
  - Swollen tongue [Unknown]
